FAERS Safety Report 7411047-5 (Version None)
Quarter: 2011Q2

REPORT INFORMATION
  Report Type: 
  Country: None (occurrence: None)
  Receive Date: 20110413
  Receipt Date: 20110405
  Transmission Date: 20111010
  Serious: Yes (Other)
  Sender: FDA-Public Use
  Company Number: JP-ASTELLAS-2010JP007617

PATIENT
  Age: 10 Year
  Sex: Female
  Weight: 26.9 kg

DRUGS (10)
  1. TAKEPRON [Concomitant]
     Dosage: 15 MG, UNKNOWN/D
     Route: 048
     Dates: start: 20080816, end: 20080903
  2. PROGRAF [Suspect]
     Indication: LIVER TRANSPLANT
     Dosage: 1.8 MG, BID
     Route: 048
     Dates: start: 20080807, end: 20080903
  3. PREDNISOLONE [Concomitant]
     Indication: LIVER TRANSPLANT
     Dosage: 7 MG, UID/QD
     Route: 048
     Dates: start: 20080816
  4. PROGRAF [Suspect]
     Dosage: 1.8 MG, BID
     Route: 048
     Dates: start: 20080807, end: 20080903
  5. CELLCEPT [Concomitant]
     Indication: LIVER TRANSPLANT
     Dosage: 100 MG, BID
     Route: 048
     Dates: start: 20080829
  6. ACIROVEC [Concomitant]
     Indication: LIVER TRANSPLANT
     Dosage: 90 MG, TID
     Route: 048
     Dates: start: 20080816
  7. SOL-MELCORT [Concomitant]
     Indication: LIVER TRANSPLANT
     Dosage: 135 MG, UID/QD
     Route: 042
     Dates: start: 20080809
  8. ANGINAL [Concomitant]
     Dosage: 100 MG, UNKNOWN/D
     Route: 048
     Dates: start: 20080816, end: 20080903
  9. URSO 250 [Concomitant]
     Indication: CHOLANGITIS SCLEROSING
     Dosage: 100 MG, TID
     Route: 048
     Dates: start: 20080816
  10. BAKTAR [Concomitant]
     Indication: LIVER TRANSPLANT
     Dosage: 1 DF, UID/QD
     Route: 048
     Dates: start: 20080816

REACTIONS (1)
  - TOXIC ENCEPHALOPATHY [None]
